FAERS Safety Report 4881246-5 (Version None)
Quarter: 2005Q4

REPORT INFORMATION
  Report Type: 
  Country: None (occurrence: None)
  Receive Date: 20051201
  Receipt Date: 20050728
  Transmission Date: 20060501
  Serious: No
  Sender: FDA-Public Use
  Company Number: 2005PV000629

PATIENT
  Age: 63 Year
  Sex: Female

DRUGS (6)
  1. BYETTA [Suspect]
     Indication: DIABETES MELLITUS NON-INSULIN-DEPENDENT
     Dosage: 5 MCG; UNKNOWN; SC
     Route: 058
     Dates: start: 20050727
  2. AVANDIA [Concomitant]
  3. FORDAMET [Concomitant]
  4. THYROID TAB [Concomitant]
  5. AMBIEN [Concomitant]
  6. ZOCOR [Concomitant]

REACTIONS (10)
  - ABDOMINAL DISTENSION [None]
  - BLOOD GLUCOSE DECREASED [None]
  - BLOOD GLUCOSE INCREASED [None]
  - DECREASED APPETITE [None]
  - FEELING JITTERY [None]
  - HEADACHE [None]
  - HYPERHIDROSIS [None]
  - INCREASED APPETITE [None]
  - INFLUENZA LIKE ILLNESS [None]
  - NAUSEA [None]
